FAERS Safety Report 21768026 (Version 1)
Quarter: 2022Q4

REPORT INFORMATION
  Report Type: Spontaneous
  Country: DK (occurrence: DK)
  Receive Date: 20221222
  Receipt Date: 20221222
  Transmission Date: 20230112
  Serious: Yes (Hospitalization)
  Sender: FDA-Public Use
  Company Number: None

PATIENT
  Age: 21 Year
  Sex: Female

DRUGS (5)
  1. ZELDOX [Suspect]
     Active Substance: ZIPRASIDONE
     Indication: Schizophrenia
     Dosage: DOSAGE AND STRENGTH: UNKNOWN
     Route: 065
     Dates: start: 2016
  2. RISPERDAL [Suspect]
     Active Substance: RISPERIDONE
     Indication: Schizotypal personality disorder
     Dosage: DOSAGE AND STRENGTH: UNKNOWN
     Route: 065
     Dates: start: 2014, end: 20140623
  3. SERTINDOLE [Suspect]
     Active Substance: SERTINDOLE
     Indication: Schizophrenia
     Dosage: DOSAGE AND STRENGTH: UNKNOWN
     Route: 065
     Dates: end: 2019
  4. ABILIFY [Suspect]
     Active Substance: ARIPIPRAZOLE
     Indication: Schizotypal personality disorder
     Dosage: 5 MG, UNKNOWN INTERVAL.STRENGTH: UNKNOWN
     Route: 065
     Dates: start: 20140623
  5. LATUDA [Suspect]
     Active Substance: LURASIDONE HYDROCHLORIDE
     Indication: Schizophrenia
     Dosage: DOSAGE: UNKNOWN, BUT INCREASED DOSE IN APR2018.STRENGTH: UNKNOWN
     Route: 065
     Dates: end: 2019

REACTIONS (2)
  - Psychotic symptom [Unknown]
  - Hallucination, auditory [Unknown]

NARRATIVE: CASE EVENT DATE: 20150101
